FAERS Safety Report 20871245 (Version 1)
Quarter: 2022Q2

REPORT INFORMATION
  Report Type: Spontaneous
  Country: CN (occurrence: None)
  Receive Date: 20220525
  Receipt Date: 20220525
  Transmission Date: 20220721
  Serious: Yes (Hospitalization, Other)
  Sender: FDA-Public Use
  Company Number: 2022A192362

PATIENT
  Age: 57 Year
  Sex: Female
  Weight: 52 kg

DRUGS (1)
  1. OSIMERTINIB MESYLATE [Suspect]
     Active Substance: OSIMERTINIB MESYLATE
     Indication: Neoplasm
     Route: 048
     Dates: start: 20220214, end: 20220312

REACTIONS (2)
  - Myelosuppression [Unknown]
  - White blood cell count decreased [Recovering/Resolving]

NARRATIVE: CASE EVENT DATE: 20220312
